FAERS Safety Report 7688766-9 (Version None)
Quarter: 2011Q3

REPORT INFORMATION
  Report Type: 
  Country: None (occurrence: None)
  Receive Date: 20110817
  Receipt Date: 20110808
  Transmission Date: 20111222
  Serious: Yes (Other)
  Sender: FDA-Public Use
  Company Number: PHHY2011JP71990

PATIENT
  Age: 58 Year
  Sex: Female

DRUGS (2)
  1. HEPARIN [Suspect]
     Indication: ANTICOAGULANT THERAPY
     Dosage: 10000 DF, UNK
  2. WARFARIN SODIUM [Concomitant]
     Indication: ANTICOAGULANT THERAPY

REACTIONS (4)
  - HEPARIN-INDUCED THROMBOCYTOPENIA [None]
  - ALANINE AMINOTRANSFERASE INCREASED [None]
  - ASPARTATE AMINOTRANSFERASE INCREASED [None]
  - THROMBOSIS IN DEVICE [None]
